FAERS Safety Report 9649983 (Version 1)
Quarter: 2013Q4

REPORT INFORMATION
  Report Type: Spontaneous
  Country: US (occurrence: US)
  Receive Date: 20131028
  Receipt Date: 20131028
  Transmission Date: 20140711
  Serious: No
  Sender: FDA-Public Use
  Company Number: US-PURDUE-USA-2012-0094859

PATIENT
  Age: 58 Year
  Sex: Male

DRUGS (2)
  1. OXYCONTIN (NDA 22-272) [Suspect]
     Indication: BACK PAIN
     Dosage: 80 MG, Q12H
     Route: 048
     Dates: start: 20121012
  2. PERCOCET                           /00867901/ [Concomitant]
     Indication: BREAKTHROUGH PAIN
     Dosage: 1 TABLET (10/325 MG), QID
     Route: 048
     Dates: start: 2009

REACTIONS (4)
  - Constipation [Not Recovered/Not Resolved]
  - Decreased appetite [Not Recovered/Not Resolved]
  - Night sweats [Not Recovered/Not Resolved]
  - Inadequate analgesia [Not Recovered/Not Resolved]
